FAERS Safety Report 7954664-6 (Version None)
Quarter: 2011Q4

REPORT INFORMATION
  Report Type: 
  Country: None (occurrence: None)
  Receive Date: 20111202
  Receipt Date: 20111130
  Transmission Date: 20120403
  Serious: Yes (Death, Hospitalization, Other)
  Sender: FDA-Public Use
  Company Number: PHHY2011JP86979

PATIENT
  Sex: Male
  Weight: 55 kg

DRUGS (9)
  1. MICARDIS [Concomitant]
     Dosage: 80 MG
     Route: 048
     Dates: start: 20110217
  2. SIMVASTATIN [Concomitant]
     Dosage: 5 MG
     Route: 048
     Dates: start: 20110217
  3. TECELEUKIN [Concomitant]
     Indication: METASTATIC RENAL CELL CARCINOMA
     Dosage: 700000 IU
     Dates: start: 20090613, end: 20101015
  4. TRICHLORMETHIAZIDE [Concomitant]
     Dosage: 2 MG
     Route: 048
     Dates: start: 20110217
  5. AFINITOR [Suspect]
     Indication: METASTATIC RENAL CELL CARCINOMA
     Dosage: 10 MG, DAILY
     Dates: start: 20110217, end: 20110302
  6. AFINITOR [Suspect]
     Dosage: 05 MG, DAILY
     Dates: start: 20110316, end: 20110720
  7. SORAFENIB TOSILATE [Concomitant]
     Indication: METASTATIC RENAL CELL CARCINOMA
     Dosage: 400 MG
     Route: 048
     Dates: start: 20101019, end: 20110209
  8. AMLODIPINE [Concomitant]
     Dosage: 10 MG
     Route: 048
     Dates: start: 20110217
  9. INTERFERON ALFA [Concomitant]
     Indication: METASTATIC RENAL CELL CARCINOMA
     Dosage: 6000000 IU
     Dates: start: 20080626, end: 20081119

REACTIONS (5)
  - HAEMOGLOBIN DECREASED [None]
  - NEOPLASM PROGRESSION [None]
  - URINARY RETENTION [None]
  - SPINAL CORD PARALYSIS [None]
  - NEOPLASM MALIGNANT [None]
